FAERS Safety Report 9656759 (Version 1)
Quarter: 2013Q4

REPORT INFORMATION
  Report Type: Spontaneous
  Country: US (occurrence: None)
  Receive Date: 20131029
  Receipt Date: 20131029
  Transmission Date: 20140711
  Serious: Yes (Other)
  Sender: FDA-Public Use
  Company Number: None

PATIENT
  Age: 76 Year
  Sex: Female

DRUGS (3)
  1. STIVARGA [Suspect]
     Indication: RECTAL CANCER METASTATIC
     Dosage: 3 WKS ON AND 1 WEEK OFF.
     Route: 048
     Dates: start: 20131022, end: 20131028
  2. STIVARGA [Suspect]
     Indication: METASTASES TO LIVER
     Dosage: 3 WKS ON AND 1 WEEK OFF.
     Route: 048
     Dates: start: 20131022, end: 20131028
  3. STIVARGA [Suspect]
     Indication: METASTASES TO LUNG
     Dosage: 3 WKS ON AND 1 WEEK OFF.
     Route: 048
     Dates: start: 20131022, end: 20131028

REACTIONS (3)
  - Dry mouth [None]
  - Blood pressure increased [None]
  - Treatment failure [None]
